FAERS Safety Report 11601308 (Version 4)
Quarter: 2015Q4

REPORT INFORMATION
  Report Type: Spontaneous
  Country: US (occurrence: US)
  Receive Date: 20151006
  Receipt Date: 20151209
  Transmission Date: 20160304
  Serious: Yes (Other)
  Sender: FDA-Public Use
  Company Number: US-AMGEN-USASP2015024009

PATIENT
  Age: 93 Year
  Sex: Female

DRUGS (1)
  1. PROLIA [Suspect]
     Active Substance: DENOSUMAB
     Indication: PRODUCT USED FOR UNKNOWN INDICATION
     Dosage: UNK
     Route: 065
     Dates: start: 2012

REACTIONS (6)
  - Jaw fracture [Unknown]
  - Tooth disorder [Unknown]
  - Rhinorrhoea [Unknown]
  - Endodontic procedure [Unknown]
  - Gingival erythema [Unknown]
  - Impetigo [Unknown]

NARRATIVE: CASE EVENT DATE: 2014
